FAERS Safety Report 9224614 (Version 1)
Quarter: 2013Q2

REPORT INFORMATION
  Report Type: Spontaneous
  Country: US (occurrence: None)
  Receive Date: 20130411
  Receipt Date: 20130411
  Transmission Date: 20140414
  Serious: Yes (Hospitalization)
  Sender: FDA-Public Use
  Company Number: None

PATIENT
  Age: 39 Year
  Sex: Female
  Weight: 61.3 kg

DRUGS (7)
  1. WARFARIN [Suspect]
     Indication: PULMONARY OEDEMA
     Dosage: PO CHRONIC
     Route: 048
  2. WARFARIN [Suspect]
     Indication: COAGULOPATHY
     Dosage: PO CHRONIC
     Route: 048
  3. PROZAC [Concomitant]
  4. KLONOPIN [Concomitant]
  5. FLEXERIL [Concomitant]
  6. NEURONTIN [Concomitant]
  7. FENTANYL [Concomitant]

REACTIONS (3)
  - Fall [None]
  - Procedural haemorrhage [None]
  - International normalised ratio increased [None]
